FAERS Safety Report 5372024-1 (Version None)
Quarter: 2007Q2

REPORT INFORMATION
  Report Type: 
  Country: None (occurrence: None)
  Receive Date: 20070627
  Receipt Date: 20070626
  Transmission Date: 20071010
  Serious: Yes (Other)
  Sender: FDA-Public Use
  Company Number: AU-BRISTOL-MYERS SQUIBB COMPANY-13826573

PATIENT
  Sex: Male

DRUGS (1)
  1. AVAPRO [Suspect]
     Route: 048

REACTIONS (1)
  - STEVENS-JOHNSON SYNDROME [None]
